FAERS Safety Report 25961191 (Version 1)
Quarter: 2025Q4

REPORT INFORMATION
  Report Type: Spontaneous
  Country: GB (occurrence: GB)
  Receive Date: 20251027
  Receipt Date: 20251027
  Transmission Date: 20260117
  Serious: Yes (Other)
  Sender: GLAXOSMITHKLINE
  Company Number: None

PATIENT
  Age: 67 Year
  Sex: Male
  Weight: 173 kg

DRUGS (1)
  1. MALARONE [Suspect]
     Active Substance: ATOVAQUONE\PROGUANIL HYDROCHLORIDE
     Indication: Malaria prophylaxis
     Dosage: 1 DF, QD (1 PER DAY)
     Route: 065

REACTIONS (7)
  - Suicidal ideation [Unknown]
  - Abdominal discomfort [Recovered/Resolved with Sequelae]
  - Fatigue [Unknown]
  - Depression [Unknown]
  - Crying [Unknown]
  - Flatulence [Unknown]
  - Sleep disorder due to a general medical condition [Unknown]

NARRATIVE: CASE EVENT DATE: 20250907
